FAERS Safety Report 9955463 (Version 2)
Quarter: 2014Q1

REPORT INFORMATION
  Report Type: Report from Study
  Country: US (occurrence: US)
  Receive Date: 20140304
  Receipt Date: 20140304
  Transmission Date: 20141002
  Serious: No
  Sender: FDA-Public Use
  Company Number: US-ABBVIE-13P-163-1062819-00

PATIENT
  Age: 56 Year
  Sex: Male

DRUGS (3)
  1. HUMIRA [Suspect]
     Indication: CROHN^S DISEASE
     Dates: start: 20130112
  2. ALIGN [Concomitant]
     Indication: PROBIOTIC THERAPY
     Dosage: PROBIOTIC DAILY
  3. CALCIUM CITRATE WITH VITAMIN D [Concomitant]
     Indication: MINERAL SUPPLEMENTATION

REACTIONS (6)
  - Toothache [Recovered/Resolved]
  - Tooth infection [Recovered/Resolved]
  - Gingivitis [Recovered/Resolved]
  - Injection site erythema [Recovered/Resolved]
  - Injection site swelling [Recovered/Resolved]
  - Injection site pruritus [Recovered/Resolved]
